FAERS Safety Report 5721174-6 (Version None)
Quarter: 2008Q2

REPORT INFORMATION
  Report Type: 
  Country: None (occurrence: None)
  Receive Date: 20080429
  Receipt Date: 20080422
  Transmission Date: 20081010
  Serious: Yes (Hospitalization)
  Sender: FDA-Public Use
  Company Number: B0517669A

PATIENT
  Age: 68 Year
  Sex: Female

DRUGS (3)
  1. AUGMENTIN '125' [Suspect]
     Route: 048
     Dates: start: 20080317, end: 20080324
  2. BRONCHODUAL [Suspect]
     Route: 055
     Dates: start: 20080317, end: 20080324
  3. ZESTRIL [Suspect]
     Dosage: 5MG PER DAY
     Route: 048
     Dates: end: 20080324

REACTIONS (7)
  - ACUTE GENERALISED EXANTHEMATOUS PUSTULOSIS [None]
  - DERMATITIS BULLOUS [None]
  - GENERAL PHYSICAL HEALTH DETERIORATION [None]
  - MALAISE [None]
  - RASH ERYTHEMATOUS [None]
  - RASH PUSTULAR [None]
  - SEPTIC SHOCK [None]
